FAERS Safety Report 8103121-5 (Version None)
Quarter: 2012Q1

REPORT INFORMATION
  Report Type: 
  Country: None (occurrence: None)
  Receive Date: 20120201
  Receipt Date: 20120124
  Transmission Date: 20120608
  Serious: Yes (Hospitalization)
  Sender: FDA-Public Use
  Company Number: JP-JNJFOC-20111108432

PATIENT
  Sex: Female
  Weight: 38 kg

DRUGS (10)
  1. LIPITOR [Concomitant]
     Indication: HYPERLIPIDAEMIA
     Dosage: 5.0 MG X 1 PER 1 DAY
     Route: 048
     Dates: end: 20111115
  2. NORVASC [Concomitant]
     Indication: HYPERTENSION
     Dosage: 5.0 MG X 1 PER 1 DAY
     Route: 048
     Dates: end: 20111115
  3. RISEDRONATE SODIUM [Concomitant]
     Indication: OSTEOPOROSIS
     Dosage: 17.5 MG X 1 PER 1 WEEK
     Route: 048
     Dates: end: 20111114
  4. PRADAXA [Suspect]
     Indication: ATRIAL FIBRILLATION
     Dosage: 1 PER 1 DAY
     Route: 048
     Dates: start: 20110912, end: 20111115
  5. TRAMADOL HYDROCHLORIDE/ACETAMINOPHEN [Suspect]
     Indication: PAIN
     Dosage: 1 PER 1 DAY
     Route: 048
     Dates: start: 20111012, end: 20111115
  6. ONEALFA [Concomitant]
     Indication: OSTEOPOROSIS
     Dosage: 0.5 UG X 1 PER 1 DAY
     Route: 048
     Dates: end: 20111116
  7. CALCIUM CARBONATE [Concomitant]
     Indication: INSOMNIA
     Dosage: 500.0 MG X 1 PER 1 DAY
     Route: 048
     Dates: end: 20111115
  8. DIGOXIN [Suspect]
     Indication: ATRIAL FIBRILLATION
     Dosage: 0.063 MG ONCE IN A DAY
     Route: 048
     Dates: start: 20110912
  9. LEVOFLOXACIN [Concomitant]
     Indication: PNEUMONIA
     Dosage: 500.0 MG X 1 PER 1 DAY
     Route: 048
     Dates: start: 20111111, end: 20111113
  10. ZOLPIDEM [Concomitant]
     Indication: INSOMNIA
     Dosage: 5.0 MG X 1 PER 1 DAY
     Route: 048
     Dates: end: 20111116

REACTIONS (1)
  - INTERSTITIAL LUNG DISEASE [None]
